FAERS Safety Report 7020815-3 (Version None)
Quarter: 2010Q3

REPORT INFORMATION
  Report Type: 
  Country: None (occurrence: None)
  Receive Date: 20100929
  Receipt Date: 20100923
  Transmission Date: 20110219
  Serious: Yes (Hospitalization)
  Sender: FDA-Public Use
  Company Number: US-MERCK-1009USA02650

PATIENT
  Age: 5 Year
  Sex: Male

DRUGS (2)
  1. INVANZ [Suspect]
     Indication: APPENDICITIS
     Route: 042
     Dates: start: 20100903, end: 20100903
  2. GENERAL ANESTHESIA (UNSPECIFIED) [Concomitant]
     Route: 065

REACTIONS (4)
  - FACE OEDEMA [None]
  - PYREXIA [None]
  - RASH [None]
  - STRIDOR [None]
